FAERS Safety Report 6003457-8 (Version None)
Quarter: 2008Q4

REPORT INFORMATION
  Report Type: 
  Country: None (occurrence: None)
  Receive Date: 20081216
  Receipt Date: 20081209
  Transmission Date: 20090506
  Serious: Yes (Other)
  Sender: FDA-Public Use
  Company Number: FR-BRISTOL-MYERS SQUIBB COMPANY-14440697

PATIENT
  Sex: Female

DRUGS (3)
  1. REYATAZ [Suspect]
     Dates: start: 20081101, end: 20080101
  2. SUSTIVA [Suspect]
     Dates: end: 20081101
  3. TRUVADA [Concomitant]

REACTIONS (5)
  - DRUG INEFFECTIVE [None]
  - NAUSEA [None]
  - OEDEMA [None]
  - RASH [None]
  - VOMITING [None]
